FAERS Safety Report 6615260-6 (Version None)
Quarter: 2010Q1

REPORT INFORMATION
  Report Type: 
  Country: None (occurrence: None)
  Receive Date: 20100226
  Receipt Date: 20100224
  Transmission Date: 20100710
  Serious: Yes (Life-Threatening, Hospitalization, Other)
  Sender: FDA-Public Use
  Company Number: SP02661

PATIENT
  Age: 70 Year
  Sex: Male

DRUGS (9)
  1. VISICOL [Suspect]
     Indication: COLONOSCOPY
     Dosage: (50 GM), ORAL
     Route: 048
     Dates: start: 20091116, end: 20091116
  2. PROPOFOL [Suspect]
     Dosage: (2 ML), INTRAVENOUS
     Route: 042
     Dates: start: 20091116, end: 20091116
  3. MIDAZOLAM HCL [Concomitant]
  4. PETHIDINE HYDROCHLORIDE [Concomitant]
  5. LANSOPRAZOLE [Concomitant]
  6. ALLOPURINOL [Concomitant]
  7. CARBAZOCHROME SODIUM SULFONATE [Concomitant]
  8. TRANEXAMIC ACID [Concomitant]
  9. GLYCYRRHIZIC ACID-METHIONINE COMBINATION [Concomitant]

REACTIONS (4)
  - DIALYSIS [None]
  - DYSPNOEA [None]
  - RENAL FAILURE ACUTE [None]
  - WEIGHT INCREASED [None]
